FAERS Safety Report 4488898-2 (Version None)
Quarter: 2004Q3

REPORT INFORMATION
  Report Type: 
  Country: None (occurrence: None)
  Receive Date: 20040921
  Receipt Date: 20030725
  Transmission Date: 20050211
  Serious: Yes (Hospitalization, Other)
  Sender: FDA-Public Use
  Company Number: 163-20785-03070580

PATIENT
  Age: 67 Year
  Sex: Female

DRUGS (4)
  1. THALOMID [Suspect]
     Indication: MULTIPLE MYELOMA
     Dosage: 200 MG, DAILY HS, ORAL; QD, DAILY HS, ORAL
     Route: 048
     Dates: start: 20030423, end: 20030507
  2. THALOMID [Suspect]
     Indication: MULTIPLE MYELOMA
     Dosage: 200 MG, DAILY HS, ORAL; QD, DAILY HS, ORAL
     Route: 048
     Dates: start: 20030522, end: 20030531
  3. DEXAMETHASONE [Suspect]
     Dosage: 100 MG, ORAL
     Route: 048
  4. AREDIA [Concomitant]

REACTIONS (3)
  - DEEP VEIN THROMBOSIS [None]
  - PULMONARY EMBOLISM [None]
  - RASH ERYTHEMATOUS [None]
